FAERS Safety Report 16318231 (Version 1)
Quarter: 2019Q2

REPORT INFORMATION
  Report Type: Spontaneous
  Country: GB (occurrence: GB)
  Receive Date: 20190516
  Receipt Date: 20190516
  Transmission Date: 20190711
  Serious: Yes (Life-Threatening, Other)
  Sender: FDA-Public Use
  Company Number: GB-TEVA-2019-GB-1049286

PATIENT
  Age: 67 Year
  Sex: Male

DRUGS (1)
  1. LOSARTAN POTASSIUM. [Suspect]
     Active Substance: LOSARTAN POTASSIUM
     Indication: HYPERTENSION
     Dosage: 50 MG OD?ALSO RECEIVED 100 MG (BN: PT02738; GX0135)
     Dates: start: 20160304

REACTIONS (3)
  - Transitional cell carcinoma [Unknown]
  - Carcinogenicity [Unknown]
  - Recalled product administered [Unknown]

NARRATIVE: CASE EVENT DATE: 201801
